FAERS Safety Report 8069975-6 (Version None)
Quarter: 2012Q1

REPORT INFORMATION
  Report Type: 
  Country: None (occurrence: None)
  Receive Date: 20120125
  Receipt Date: 20120117
  Transmission Date: 20120608
  Serious: Yes (Other)
  Sender: FDA-Public Use
  Company Number: JP-ASTELLAS-2011US007580

PATIENT
  Sex: Male

DRUGS (2)
  1. MAGMITT [Concomitant]
     Indication: CONSTIPATION
     Dosage: 330 MG, 3 IN 1 D
     Route: 048
  2. TARCEVA [Suspect]
     Indication: LUNG ADENOCARCINOMA
     Dosage: 150 MG, UID/QD
     Route: 048
     Dates: start: 20110323, end: 20110510

REACTIONS (6)
  - ABDOMINAL DISCOMFORT [None]
  - DECREASED APPETITE [None]
  - INTERSTITIAL LUNG DISEASE [None]
  - ACNE [None]
  - HAEMOGLOBIN DECREASED [None]
  - MALNUTRITION [None]
